FAERS Safety Report 11096803 (Version 1)
Quarter: 2015Q2

REPORT INFORMATION
  Report Type: Spontaneous
  Country: GB (occurrence: GB)
  Receive Date: 20150507
  Receipt Date: 20150507
  Transmission Date: 20150821
  Serious: Yes (Hospitalization)
  Sender: FDA-Public Use
  Company Number: GB-PFIZER INC-2015152994

PATIENT
  Age: 67 Year
  Sex: Female

DRUGS (2)
  1. CRIZOTINIB [Suspect]
     Active Substance: CRIZOTINIB
     Indication: LUNG ADENOCARCINOMA
     Dosage: 250 MG, 2X/DAY
     Dates: start: 201405
  2. CRIZOTINIB [Suspect]
     Active Substance: CRIZOTINIB
     Dosage: 200 MG, 2X/DAY

REACTIONS (11)
  - Diarrhoea [Unknown]
  - Malaise [Unknown]
  - Fatigue [Unknown]
  - Cellulitis [Unknown]
  - Lung adenocarcinoma [Unknown]
  - Oedema peripheral [Unknown]
  - Pneumonia [Unknown]
  - Decubitus ulcer [Unknown]
  - Mobility decreased [Unknown]
  - Cardiac failure [Unknown]
  - Disease progression [Unknown]

NARRATIVE: CASE EVENT DATE: 201405
